APPROVED DRUG PRODUCT: PRAMIPEXOLE DIHYDROCHLORIDE
Active Ingredient: PRAMIPEXOLE DIHYDROCHLORIDE
Strength: 0.25MG
Dosage Form/Route: TABLET;ORAL
Application: A202702 | Product #002 | TE Code: AB
Applicant: STRIDES PHARMA GLOBAL PTE LTD
Approved: Jun 3, 2014 | RLD: No | RS: No | Type: RX